FAERS Safety Report 4775553-4 (Version None)
Quarter: 2005Q3

REPORT INFORMATION
  Report Type: 
  Country: None (occurrence: None)
  Receive Date: 20050922
  Receipt Date: 20050914
  Transmission Date: 20060218
  Serious: Yes (Hospitalization, Other)
  Sender: FDA-Public Use
  Company Number: 200516588US

PATIENT
  Sex: Female

DRUGS (4)
  1. TAXOTERE [Suspect]
     Indication: BREAST CANCER
     Dosage: DOSE: UNK
     Route: 042
  2. COUMADIN [Concomitant]
     Dosage: DOSE: UNK
  3. CYTOXAN [Concomitant]
     Dosage: DOSE: 4 CYCLES
  4. ADRIAMYCIN PFS [Concomitant]
     Dosage: DOSE: 4 CYCLES

REACTIONS (10)
  - CANDIDIASIS [None]
  - ERYTHEMA [None]
  - FEBRILE NEUTROPENIA [None]
  - HAEMORRHAGE [None]
  - HEPATITIS C [None]
  - HYPOTENSION [None]
  - PANCYTOPENIA [None]
  - SKIN REACTION [None]
  - SWELLING [None]
  - URINARY TRACT INFECTION [None]
